FAERS Safety Report 24402892 (Version 2)
Quarter: 2024Q4

REPORT INFORMATION
  Report Type: Spontaneous
  Country: CA (occurrence: CA)
  Receive Date: 20241007
  Receipt Date: 20241007
  Transmission Date: 20250115
  Serious: Yes (Death, Hospitalization, Other)
  Sender: ALEXION PHARMACEUTICALS
  Company Number: CA-AstraZeneca-CH-00710807A

PATIENT
  Age: 54 Year

DRUGS (24)
  1. QUETIAPINE FUMARATE [Interacting]
     Active Substance: QUETIAPINE FUMARATE
     Indication: Mental disorder
  2. QUETIAPINE FUMARATE [Interacting]
     Active Substance: QUETIAPINE FUMARATE
     Indication: Depression
     Route: 065
  3. QUETIAPINE FUMARATE [Interacting]
     Active Substance: QUETIAPINE FUMARATE
     Indication: Bipolar disorder
  4. ATAZANAVIR [Interacting]
     Active Substance: ATAZANAVIR
     Route: 065
  5. BUPROPION [Interacting]
     Active Substance: BUPROPION
     Route: 065
  6. CELECOXIB [Interacting]
     Active Substance: CELECOXIB
     Route: 065
  7. CITALOPRAM [Interacting]
     Active Substance: CITALOPRAM
     Route: 065
  8. CLONAZEPAM [Interacting]
     Active Substance: CLONAZEPAM
     Route: 065
  9. EFAVIRENZ [Interacting]
     Active Substance: EFAVIRENZ
     Route: 065
  10. ISENTRESS [Interacting]
     Active Substance: RALTEGRAVIR POTASSIUM
     Route: 065
  11. KALETRA [Interacting]
     Active Substance: LOPINAVIR\RITONAVIR
     Route: 065
  12. LAMIVUDINE [Interacting]
     Active Substance: LAMIVUDINE
     Route: 065
  13. RALTEGRAVIR [Interacting]
     Active Substance: RALTEGRAVIR
     Route: 065
  14. RISPERIDONE [Interacting]
     Active Substance: RISPERIDONE
     Route: 065
  15. RITONAVIR [Interacting]
     Active Substance: RITONAVIR
     Route: 065
  16. RIVOTRIL [Interacting]
     Active Substance: CLONAZEPAM
     Route: 065
  17. SERTRALINE HYDROCHLORIDE [Interacting]
     Active Substance: SERTRALINE HYDROCHLORIDE
     Route: 065
  18. SUSTIVA [Interacting]
     Active Substance: EFAVIRENZ
     Route: 065
  19. ENFUVIRTIDE [Interacting]
     Active Substance: ENFUVIRTIDE
     Route: 065
  20. TENOFOVIR DISOPROXIL FUMARATE [Interacting]
     Active Substance: TENOFOVIR DISOPROXIL FUMARATE
     Route: 065
  21. VALPROATE SODIUM [Interacting]
     Active Substance: VALPROATE SODIUM
     Route: 065
  22. VALPROIC ACID [Interacting]
     Active Substance: VALPROIC ACID
     Route: 065
  23. VIREAD [Interacting]
     Active Substance: TENOFOVIR DISOPROXIL FUMARATE
     Route: 065
  24. ZOPICLONE [Interacting]
     Active Substance: ZOPICLONE
     Route: 065

REACTIONS (15)
  - Anxiety [Fatal]
  - Depression [Fatal]
  - Depression suicidal [Fatal]
  - Depressive symptom [Fatal]
  - Drug interaction [Fatal]
  - Loss of personal independence in daily activities [Fatal]
  - Paranoia [Fatal]
  - Prescribed overdose [Fatal]
  - Psychiatric decompensation [Fatal]
  - Psychomotor skills impaired [Fatal]
  - Psychotic disorder [Fatal]
  - Suicidal ideation [Fatal]
  - Tearfulness [Fatal]
  - Intentional product use issue [Fatal]
  - Product use in unapproved indication [Fatal]
